FAERS Safety Report 26195071 (Version 1)
Quarter: 2025Q4

REPORT INFORMATION
  Report Type: Spontaneous
  Country: GB (occurrence: GB)
  Receive Date: 20251224
  Receipt Date: 20251224
  Transmission Date: 20260118
  Serious: Yes (Hospitalization, Other)
  Sender: MYLAN
  Company Number: None

PATIENT
  Age: 42 Year
  Sex: Male

DRUGS (4)
  1. LANSOPRAZOLE [Suspect]
     Active Substance: LANSOPRAZOLE
     Indication: Arthralgia
     Dosage: 30 MILLIGRAM, QD (30MG OD- WAS ACUTELY TAKING 30MG BD)
  2. LANSOPRAZOLE [Suspect]
     Active Substance: LANSOPRAZOLE
     Dosage: 30 MILLIGRAM, BID (30MG OD- WAS ACUTELY TAKING 30MG BD )
  3. NAPROXEN [Suspect]
     Active Substance: NAPROXEN
     Indication: Arthralgia
     Dosage: 500 MILLIGRAM, BID (NAPROXEN 500MG BD 3/52 THEN REDUCE TO 500MG OD (PT WAS TAKING 500MG BD AT THETIME OF ADMISSION))
  4. NAPROXEN [Suspect]
     Active Substance: NAPROXEN
     Dosage: 500 MILLIGRAM, QD (NAPROXEN 500MG BD 3/52 THEN REDUCE TO 500MG OD (PT WAS TAKING 500MG BD AT THETIME OF ADMISSION))

REACTIONS (2)
  - Acute kidney injury [Recovered/Resolved]
  - Hyperkalaemia [Recovered/Resolved]
